FAERS Safety Report 9592966 (Version 1)
Quarter: 2013Q4

REPORT INFORMATION
  Report Type: Spontaneous
  Country: US (occurrence: None)
  Receive Date: 20131002
  Receipt Date: 20131002
  Transmission Date: 20140711
  Serious: Yes (Hospitalization)
  Sender: FDA-Public Use
  Company Number: FK201304335

PATIENT
  Age: 56 Year
  Sex: 0

DRUGS (2)
  1. CARBOPLATIN [Suspect]
     Indication: PRODUCT USED FOR UNKNOWN INDICATION
  2. ANASTROZOLE [Suspect]
     Indication: BREAST CANCER

REACTIONS (3)
  - Papilloedema [None]
  - Visual acuity reduced [None]
  - Visual field defect [None]
